FAERS Safety Report 7359675-X (Version None)
Quarter: 2011Q1

REPORT INFORMATION
  Report Type: 
  Country: None (occurrence: None)
  Receive Date: 20110317
  Receipt Date: 20100308
  Transmission Date: 20110831
  Serious: Yes (Other)
  Sender: FDA-Public Use
  Company Number: US-PFIZER INC-2010018713

PATIENT
  Sex: Male
  Weight: 88.45 kg

DRUGS (5)
  1. NORVASC [Suspect]
     Indication: CARDIOVASCULAR DISORDER
     Dosage: 10 MG, 2X/DAY
     Route: 048
     Dates: start: 20090101, end: 20091101
  2. PROCARDIA [Concomitant]
  3. LIPITOR [Concomitant]
     Indication: BLOOD CHOLESTEROL INCREASED
     Dosage: UNK
  4. NORVASC [Suspect]
     Indication: RAYNAUD'S PHENOMENON
  5. PROTONIX [Concomitant]
     Indication: GASTROOESOPHAGEAL REFLUX DISEASE
     Dosage: UNK

REACTIONS (3)
  - DRUG INEFFECTIVE [None]
  - SWELLING [None]
  - OEDEMA PERIPHERAL [None]
